FAERS Safety Report 5483256-6 (Version None)
Quarter: 2007Q4

REPORT INFORMATION
  Report Type: 
  Country: None (occurrence: None)
  Receive Date: 20071009
  Receipt Date: 20071003
  Transmission Date: 20080405
  Serious: Yes (Hospitalization)
  Sender: FDA-Public Use
  Company Number: 2007SP011076

PATIENT
  Age: 56 Year
  Sex: Female

DRUGS (3)
  1. TEMODAL [Suspect]
     Indication: GLIOBLASTOMA
     Dosage: 120 MG; QD; PO, 225 MG; QD; PO
     Route: 048
     Dates: start: 20070301
  2. TEMODAL [Suspect]
     Indication: GLIOBLASTOMA
     Dosage: 120 MG; QD; PO, 225 MG; QD; PO
     Route: 048
     Dates: start: 20070501
  3. MEDROL [Suspect]
     Indication: GLIOBLASTOMA
     Dosage: 96 MG; QD; PO
     Route: 048

REACTIONS (2)
  - PNEUMONIA [None]
  - PULMONARY INTERSTITIAL EMPHYSEMA SYNDROME [None]
